FAERS Safety Report 24869568 (Version 1)
Quarter: 2025Q1

REPORT INFORMATION
  Report Type: Spontaneous
  Country: US (occurrence: US)
  Receive Date: 20250121
  Receipt Date: 20250121
  Transmission Date: 20250408
  Serious: No
  Sender: MYLAN
  Company Number: US-MYLANLABS-2025M1002996

PATIENT
  Age: 60 Year
  Sex: Female
  Weight: 63.5 kg

DRUGS (3)
  1. ESTRADIOL TRANSDERMAL SYSTEM [Suspect]
     Active Substance: ESTRADIOL
     Indication: Hormone replacement therapy
     Dosage: 0.05 MILLIGRAM, QD (EVERY 3.5 DAYS EVERY TUESDAY NIGHT AND SATURDAY MORNING)
     Route: 062
  2. ESTRADIOL TRANSDERMAL SYSTEM [Suspect]
     Active Substance: ESTRADIOL
     Indication: Menopause
  3. PROGESTERONE [Concomitant]
     Active Substance: PROGESTERONE
     Indication: Menopause
     Dosage: UNK, QD (DAILY)
     Route: 048

REACTIONS (5)
  - Wound complication [Recovering/Resolving]
  - Wound haemorrhage [Recovering/Resolving]
  - Skin laceration [Recovering/Resolving]
  - Product package associated injury [Recovering/Resolving]
  - Packaging design issue [Unknown]

NARRATIVE: CASE EVENT DATE: 20250107
